FAERS Safety Report 8031500-3 (Version None)
Quarter: 2012Q1

REPORT INFORMATION
  Report Type: 
  Country: None (occurrence: None)
  Receive Date: 20120109
  Receipt Date: 20120102
  Transmission Date: 20120608
  Serious: Yes (Hospitalization, Other)
  Sender: FDA-Public Use
  Company Number: BE-B.I. PHARMACEUTICALS,INC./RIDGEFIELD-2011-BL-00290BL

PATIENT
  Sex: Male
  Weight: 96 kg

DRUGS (8)
  1. PRADAXA [Suspect]
     Indication: ATRIAL FIBRILLATION
     Dosage: 220 MG
     Dates: start: 20111013, end: 20111101
  2. BUMETANIDE [Concomitant]
     Dates: start: 20080817
  3. DEANXIT [Concomitant]
  4. CO-BISOPROLOL [Concomitant]
     Dosage: 10/25
  5. BIO FER [Concomitant]
  6. CORUNO [Concomitant]
     Dates: start: 20080620
  7. OMEPRAZOLE [Concomitant]
     Dates: start: 20080828
  8. ALLOPURINOL [Concomitant]

REACTIONS (2)
  - HEPATIC CIRRHOSIS [None]
  - POST PROCEDURAL HAEMORRHAGE [None]
